FAERS Safety Report 16960476 (Version 2)
Quarter: 2020Q1

REPORT INFORMATION
  Report Type: Other
  Country: GB (occurrence: GB)
  Receive Date: 20191025
  Receipt Date: 20200120
  Transmission Date: 20200409
  Serious: Yes (Hospitalization)
  Sender: FDA-Public Use
  Company Number: GB-EMCURE PHARMACEUTICALS LTD-2019-EPL-0984

PATIENT
  Age: 81 Year
  Sex: Female

DRUGS (12)
  1. ATORVASTATIN [Concomitant]
     Active Substance: ATORVASTATIN
     Dosage: 20 MG, AT NIGHT, DAILY
  2. WARFARIN [Concomitant]
     Active Substance: WARFARIN
     Dosage: 5MG ON MONDAY + 4MG THE REST OF THE WEEK
  3. PYRIDOXINE [Concomitant]
     Active Substance: PYRIDOXINE
     Dosage: 150 MILLIGRAM, QD
  4. BISOPROLOL [Suspect]
     Active Substance: BISOPROLOL
     Indication: PRODUCT USED FOR UNKNOWN INDICATION
     Dosage: 3.75 MG DAILY IN THE MORNING
  5. LIDOCAINE. [Concomitant]
     Active Substance: LIDOCAINE
     Dosage: 1 DF, DAILY AT NIGHT
  6. HUMULIN L [Concomitant]
     Active Substance: INSULIN HUMAN
     Dosage: 14 IU, 12 NOON (100UNITS/ML)
  7. LANSOPRAZOLE. [Concomitant]
     Active Substance: LANSOPRAZOLE
     Dosage: 15 MG DAILY, IN THE MORNING
  8. CASSIA SENNA [Concomitant]
     Active Substance: HERBALS\SENNOSIDES
     Dosage: 15 MG AT NIGHT
  9. VITAMIN B COMPOUND STRONG [Concomitant]
     Active Substance: NIACINAMIDE\PYRIDOXINE HYDROCHLORIDE\RIBOFLAVIN\THIAMINE HYDROCHLORIDE
     Dosage: 1 DF DAILY IN THE MORNING
  10. SERTRALINE HYDROCHLORIDE. [Suspect]
     Active Substance: SERTRALINE HYDROCHLORIDE
     Indication: PRODUCT USED FOR UNKNOWN INDICATION
     Dosage: 100 MG DAILY IN THE MORNING
  11. NOVORAPID [Concomitant]
     Active Substance: INSULIN ASPART
     Dosage: 42 IU, 16 UNITS 9AM, 14 UNITS 12 NOON, 12 UNITS 5PM (100UNITS/ML )
  12. FOLIC ACID. [Concomitant]
     Active Substance: FOLIC ACID
     Dosage: 5 MG,DAILY IN THE MORNING

REACTIONS (5)
  - Blood glucose decreased [Unknown]
  - Electrocardiogram QT prolonged [Recovered/Resolved]
  - Productive cough [Unknown]
  - Pneumonia aspiration [Unknown]
  - Somnolence [Unknown]
